FAERS Safety Report 21984694 (Version 1)
Quarter: 2023Q1

REPORT INFORMATION
  Report Type: Spontaneous
  Country: MY (occurrence: MY)
  Receive Date: 20230213
  Receipt Date: 20230213
  Transmission Date: 20230418
  Serious: Yes (Death, Life-Threatening, Hospitalization, Other)
  Sender: FDA-Public Use
  Company Number: MY-PFIZER INC-PV202300026456

PATIENT
  Age: 45 Year
  Sex: Female

DRUGS (1)
  1. HYDROCORTISONE SODIUM SUCCINATE [Suspect]
     Active Substance: HYDROCORTISONE SODIUM SUCCINATE
     Indication: Immune thrombocytopenia
     Dosage: UNK
     Route: 042

REACTIONS (4)
  - Drug ineffective [Fatal]
  - Platelet count decreased [Fatal]
  - Renal impairment [Fatal]
  - Blood creatine increased [Fatal]
